FAERS Safety Report 10257781 (Version 1)
Quarter: 2014Q2

REPORT INFORMATION
  Report Type: Report from Study
  Country: FI (occurrence: FI)
  Receive Date: 20140625
  Receipt Date: 20140625
  Transmission Date: 20141212
  Serious: Yes (Hospitalization)
  Sender: FDA-Public Use
  Company Number: FI-BAYER-2014-093659

PATIENT
  Age: 30 Year
  Sex: Female
  Weight: 48 kg

DRUGS (1)
  1. LEVONORGESTREL (LCS, 12?G/D, 28X30) [Suspect]
     Indication: CONTRACEPTION
     Dosage: 12 MCG/24HR, CONT
     Route: 015
     Dates: start: 2011

REACTIONS (3)
  - Ovarian adenoma [Recovered/Resolved]
  - Fatigue [Not Recovered/Not Resolved]
  - Ovarian cyst [Recovered/Resolved]
